FAERS Safety Report 7892406-3 (Version None)
Quarter: 2011Q4

REPORT INFORMATION
  Report Type: 
  Country: None (occurrence: None)
  Receive Date: 20111104
  Receipt Date: 20111025
  Transmission Date: 20120403
  Serious: No
  Sender: FDA-Public Use
  Company Number: GB-JNJFOC-20110911553

PATIENT
  Sex: Female

DRUGS (1)
  1. PALEXIA [Suspect]
     Indication: PAIN
     Dosage: TWICE PER DAY
     Route: 048
     Dates: start: 20110101, end: 20110101

REACTIONS (1)
  - OEDEMA PERIPHERAL [None]
